FAERS Safety Report 20299328 (Version 1)
Quarter: 2022Q1

REPORT INFORMATION
  Report Type: Spontaneous
  Country: US (occurrence: None)
  Receive Date: 20220104
  Receipt Date: 20220104
  Transmission Date: 20220423
  Serious: Yes (Disabling)
  Sender: FDA-Public Use
  Company Number: None

PATIENT
  Age: 33 Year
  Sex: Female
  Weight: 69.75 kg

DRUGS (9)
  1. AIMOVIG (ERENUMAB) [Suspect]
     Active Substance: ERENUMAB
     Indication: Migraine
     Dosage: OTHER QUANTITY : 1 INJECTION(S);?OTHER FREQUENCY : MONTHLY;?OTHER ROUTE : SUBQ INJECTION;?
     Route: 050
     Dates: start: 20211206
  2. PROTONIX [Concomitant]
     Active Substance: PANTOPRAZOLE SODIUM
  3. CARAFATE [Concomitant]
     Active Substance: SUCRALFATE
  4. ALBUTEROL [Concomitant]
     Active Substance: ALBUTEROL
  5. VITAMIN C [Concomitant]
     Active Substance: ASCORBIC ACID
  6. VITAMIN D NOS [Concomitant]
     Active Substance: VITAMIN D NOS
  7. VITAMIN E [Concomitant]
     Active Substance: .ALPHA.-TOCOPHEROL
  8. BIOTIN [Concomitant]
     Active Substance: BIOTIN
  9. magnessium [Concomitant]

REACTIONS (7)
  - Heart rate increased [None]
  - Syncope [None]
  - Dizziness [None]
  - Weight increased [None]
  - Hepatic enzyme increased [None]
  - Constipation [None]
  - Blood pressure increased [None]

NARRATIVE: CASE EVENT DATE: 20211208
